FAERS Safety Report 10243988 (Version 2)
Quarter: 2014Q3

REPORT INFORMATION
  Report Type: Spontaneous
  Country: US (occurrence: US)
  Receive Date: 20140618
  Receipt Date: 20140722
  Transmission Date: 20150326
  Serious: Yes (Life-Threatening, Hospitalization, Other)
  Sender: FDA-Public Use
  Company Number: CHPA2014US008041

PATIENT
  Age: 70 Year
  Sex: Female

DRUGS (2)
  1. NODOZ [Suspect]
     Active Substance: CAFFEINE
     Indication: POOR QUALITY SLEEP
     Dosage: 1 DF, UNK
     Route: 048
  2. NODOZ [Suspect]
     Active Substance: CAFFEINE
     Dosage: UNK
     Route: 048
     Dates: end: 201405

REACTIONS (4)
  - Thyroid disorder [Unknown]
  - Polymyalgia rheumatica [Not Recovered/Not Resolved]
  - Haemoglobin decreased [Unknown]
  - Drug ineffective [Unknown]

NARRATIVE: CASE EVENT DATE: 200610
